FAERS Safety Report 7155735-7 (Version None)
Quarter: 2010Q4

REPORT INFORMATION
  Report Type: 
  Country: None (occurrence: None)
  Receive Date: 20101123
  Receipt Date: 20100907
  Transmission Date: 20110411
  Serious: No
  Sender: FDA-Public Use
  Company Number: 018356

PATIENT
  Sex: Male
  Weight: 95.3 kg

DRUGS (6)
  1. CIMZIA [Suspect]
     Indication: RHEUMATOID ARTHRITIS
     Dosage: 400 MG 1X/4 WEEKS SUBCUTANEOUS
     Route: 058
     Dates: start: 20100501
  2. ASPIRIN [Concomitant]
  3. TYLENOL /000020001/ [Concomitant]
  4. LIPITOR [Concomitant]
  5. LISINOPRIL [Concomitant]
  6. PLAVIX [Concomitant]

REACTIONS (1)
  - DRUG SCREEN POSITIVE [None]
